FAERS Safety Report 9267182 (Version 3)
Quarter: 2013Q4

REPORT INFORMATION
  Report Type: Spontaneous
  Country: US (occurrence: US)
  Receive Date: 20130502
  Receipt Date: 20131016
  Transmission Date: 20140711
  Serious: No
  Sender: FDA-Public Use
  Company Number: US-009507513-1305USA000057

PATIENT
  Sex: Female

DRUGS (5)
  1. PEGINTRON [Suspect]
     Indication: HEPATITIS C
     Dosage: 150 MICROGRAM, QW
     Route: 058
     Dates: start: 20130326
  2. RIBASPHERE [Suspect]
     Indication: HEPATITIS C
     Dosage: 3 DF, BID
     Dates: start: 20130226, end: 2013
  3. RIBASPHERE [Suspect]
     Dosage: 2 DF, BID
     Dates: start: 2013
  4. TELAPREVIR [Suspect]
     Indication: HEPATITIS C
     Dosage: UNK
     Dates: start: 20130226
  5. PEGASYS [Suspect]
     Indication: HEPATITIS C
     Dosage: UNK
     Dates: start: 20130226, end: 20130326

REACTIONS (12)
  - Skin disorder [Unknown]
  - Drug dose omission [Unknown]
  - Depression [Unknown]
  - Insomnia [Unknown]
  - Depression [Unknown]
  - Respiratory disorder [Unknown]
  - Chills [Recovered/Resolved]
  - Pyrexia [Recovered/Resolved]
  - Anaemia [Unknown]
  - Haemoglobin decreased [Unknown]
  - Drug dose omission [Unknown]
  - Product quality issue [Unknown]
